FAERS Safety Report 6899281-4 (Version None)
Quarter: 2010Q3

REPORT INFORMATION
  Report Type: 
  Country: None (occurrence: None)
  Receive Date: 20100802
  Receipt Date: 20080721
  Transmission Date: 20110219
  Serious: No
  Sender: FDA-Public Use
  Company Number: US-PFIZER INC-2007107757

PATIENT
  Sex: Female
  Weight: 74.8 kg

DRUGS (11)
  1. LYRICA [Suspect]
     Indication: FIBROMYALGIA
     Dates: start: 20071218, end: 20071219
  2. LYRICA [Suspect]
     Indication: NEURALGIA
  3. DOXEPIN HCL [Suspect]
     Indication: ANXIETY
     Route: 048
  4. CLONAZEPAM [Suspect]
  5. CYMBALTA [Concomitant]
  6. LUNESTA [Concomitant]
  7. SOMA [Concomitant]
  8. HYDROCHLOROTHIAZIDE [Concomitant]
  9. VICODIN [Concomitant]
  10. OPIOIDS [Concomitant]
  11. LORAZEPAM [Concomitant]

REACTIONS (8)
  - ANXIETY [None]
  - DIZZINESS [None]
  - MALAISE [None]
  - PANIC ATTACK [None]
  - SOMATOFORM DISORDER [None]
  - SOMNOLENCE [None]
  - TREMOR [None]
  - WEIGHT DECREASED [None]
